FAERS Safety Report 8695735 (Version 2)
Quarter: 2013Q4

REPORT INFORMATION
  Report Type: Spontaneous
  Country: US (occurrence: US)
  Receive Date: 20120731
  Receipt Date: 20131031
  Transmission Date: 20140711
  Serious: Yes (Other)
  Sender: FDA-Public Use
  Company Number: US-009507513-1207USA011298

PATIENT
  Sex: Female

DRUGS (5)
  1. ZOCOR [Suspect]
     Dosage: 20 MG, QD
     Route: 048
  2. METOPROLOL [Suspect]
     Dosage: 200 MG, QD
     Route: 048
  3. EXFORGE HCT [Suspect]
     Dosage: 5 MG, UNK
     Route: 048
  4. EXFORGE HCT [Suspect]
     Dosage: 160 MG, UNK
     Route: 048
  5. EXFORGE HCT [Suspect]
     Dosage: 12.5 MG, UNK
     Route: 048

REACTIONS (2)
  - Angina pectoris [Unknown]
  - Dyspnoea [Unknown]
